FAERS Safety Report 20878020 (Version 1)
Quarter: 2022Q2

REPORT INFORMATION
  Report Type: Spontaneous
  Country: US (occurrence: US)
  Receive Date: 20220526
  Receipt Date: 20220526
  Transmission Date: 20220720
  Serious: No
  Sender: FDA-Public Use
  Company Number: US-PFIZER INC-202200634565

PATIENT
  Age: 74 Year
  Sex: Male
  Weight: 68.04 kg

DRUGS (1)
  1. SOMATROPIN [Suspect]
     Active Substance: SOMATROPIN
     Indication: Growth hormone deficiency
     Dosage: 1.6 MG (INJECTED NIGHTLY)

REACTIONS (1)
  - Therapeutic response unexpected [Unknown]
